FAERS Safety Report 6440877-1 (Version None)
Quarter: 2009Q4

REPORT INFORMATION
  Report Type: 
  Country: None (occurrence: None)
  Receive Date: 20091116
  Receipt Date: 20091111
  Transmission Date: 20100525
  Serious: Yes (Death)
  Sender: FDA-Public Use
  Company Number: US-BRISTOL-MYERS SQUIBB COMPANY-14760912

PATIENT
  Age: 52 Year
  Sex: Male
  Weight: 71 kg

DRUGS (10)
  1. IXABEPILONE [Suspect]
     Indication: NON-SMALL CELL LUNG CANCER
     Route: 042
     Dates: start: 20090629, end: 20090811
  2. CARBOPLATIN [Suspect]
     Indication: NON-SMALL CELL LUNG CANCER
     Route: 042
     Dates: start: 20090629, end: 20090811
  3. AVASTIN [Suspect]
     Indication: NON-SMALL CELL LUNG CANCER
     Route: 042
     Dates: start: 20090629, end: 20090811
  4. CIPRO [Concomitant]
     Dosage: HC .2%-1% OTIC DROPS,INNER EAR CANAL
     Route: 061
     Dates: start: 20090811, end: 20090820
  5. MEGACE [Concomitant]
     Dosage: 1DOSAGEFORM=40MG/10ML,1TABLESPOON
     Route: 048
     Dates: start: 20090728, end: 20090820
  6. COMPAZINE [Concomitant]
     Indication: NAUSEA
     Route: 048
     Dates: start: 20090630, end: 20090820
  7. VICODIN [Concomitant]
     Indication: PAIN
     Dosage: 1DOSAGEFORM=5MG/500MG TAB
     Route: 048
     Dates: start: 20090629, end: 20090820
  8. ALOXI [Concomitant]
     Route: 042
     Dates: start: 20090629, end: 20090811
  9. DECADRON [Concomitant]
     Route: 042
     Dates: start: 20090629, end: 20090811
  10. BENADRYL [Concomitant]
     Route: 042
     Dates: start: 20090629, end: 20090811

REACTIONS (1)
  - DEATH [None]
